FAERS Safety Report 6366706-2 (Version None)
Quarter: 2009Q3

REPORT INFORMATION
  Report Type: 
  Country: None (occurrence: None)
  Receive Date: 20090921
  Receipt Date: 20090107
  Transmission Date: 20100115
  Serious: Yes (Hospitalization, Other)
  Sender: FDA-Public Use
  Company Number: US-PFIZER INC-2006103361

PATIENT
  Sex: Male
  Weight: 80.285 kg

DRUGS (6)
  1. LIPITOR [Suspect]
     Indication: LOW DENSITY LIPOPROTEIN INCREASED
     Dosage: 20 MG, 1X/DAY
     Route: 065
     Dates: start: 20000101
  2. SEROQUEL [Suspect]
     Indication: SLEEP DISORDER
     Route: 065
     Dates: start: 20030101, end: 20040101
  3. LASIX [Suspect]
     Indication: PULMONARY OEDEMA
     Dates: start: 20080101
  4. LASIX [Suspect]
     Indication: OEDEMA PERIPHERAL
  5. ANTIDEPRESSANTS [Concomitant]
     Route: 065
  6. PREVACID [Concomitant]
     Route: 065

REACTIONS (10)
  - ARTERIAL OCCLUSIVE DISEASE [None]
  - ATRIAL FIBRILLATION [None]
  - CARDIAC FAILURE CONGESTIVE [None]
  - HYPERTENSION [None]
  - NEURALGIA [None]
  - NEURODERMATITIS [None]
  - POOR QUALITY SLEEP [None]
  - PULMONARY OEDEMA [None]
  - SLEEP DISORDER [None]
  - TYPE 2 DIABETES MELLITUS [None]
